FAERS Safety Report 8532203-9 (Version None)
Quarter: 2012Q3

REPORT INFORMATION
  Report Type: 
  Country: None (occurrence: None)
  Receive Date: 20120723
  Receipt Date: 20120718
  Transmission Date: 20120928
  Serious: Yes (Disabling)
  Sender: FDA-Public Use
  Company Number: CA-ROCHE-690929

PATIENT
  Age: 61 Year
  Sex: Female

DRUGS (10)
  1. RITUXAN [Suspect]
     Indication: NON-HODGKIN'S LYMPHOMA
     Dosage: INITIAL THERAPY
     Route: 042
  2. AMOXICILLIN AND CLAVULANATE POTASSIUM [Concomitant]
  3. CYCLOPHOSPHAMIDE [Concomitant]
  4. CLARITHROMYCIN [Suspect]
     Indication: PRODUCT USED FOR UNKNOWN INDICATION
     Route: 065
  5. PREDNISONE [Concomitant]
  6. RITUXAN [Suspect]
     Route: 042
  7. DOXORUBICIN HYDROCHLORIDE [Concomitant]
  8. VINCRISTINE [Concomitant]
  9. CALCIUM [Concomitant]
  10. VITAMIN D [Concomitant]

REACTIONS (2)
  - OEDEMA PERIPHERAL [None]
  - DEAFNESS [None]
